FAERS Safety Report 19810258 (Version 2)
Quarter: 2021Q3

REPORT INFORMATION
  Report Type: Spontaneous
  Country: NL (occurrence: NL)
  Receive Date: 20210908
  Receipt Date: 20210917
  Transmission Date: 20211014
  Serious: Yes (Hospitalization)
  Sender: FDA-Public Use
  Company Number: NL-BAUSCH-BL-2021-029097

PATIENT
  Age: 18 Month
  Sex: Female

DRUGS (1)
  1. METOCLOPRAMIDE. [Suspect]
     Active Substance: METOCLOPRAMIDE
     Indication: VOMITING
     Dosage: SINGLE DOSE
     Route: 048

REACTIONS (3)
  - Neuroleptic malignant syndrome [Recovered/Resolved]
  - Overdose [Unknown]
  - Dystonia [Recovered/Resolved]
